FAERS Safety Report 9492340 (Version 1)
Quarter: 2013Q3

REPORT INFORMATION
  Report Type: Spontaneous
  Country: AR (occurrence: AR)
  Receive Date: 20130830
  Receipt Date: 20130830
  Transmission Date: 20140515
  Serious: Yes (Other)
  Sender: FDA-Public Use
  Company Number: PHHY2013AR092419

PATIENT
  Age: 47 Year
  Sex: Male

DRUGS (2)
  1. RIBAVIRIN [Suspect]
     Indication: CHRONIC HEPATITIS C
  2. PEGINTERFERON ALFA-2B [Concomitant]
     Indication: CHRONIC HEPATITIS C

REACTIONS (4)
  - Porphyria non-acute [Unknown]
  - Photosensitivity reaction [Unknown]
  - Haemolysis [Unknown]
  - Iron overload [Unknown]
